FAERS Safety Report 5926374-8 (Version None)
Quarter: 2008Q4

REPORT INFORMATION
  Report Type: 
  Country: None (occurrence: None)
  Receive Date: 20081022
  Receipt Date: 20081015
  Transmission Date: 20090506
  Serious: Yes (Hospitalization, Other)
  Sender: FDA-Public Use
  Company Number: CA-AMGEN-KDL265990

PATIENT
  Sex: Female

DRUGS (4)
  1. KINERET [Suspect]
     Indication: JUVENILE ARTHRITIS
     Route: 058
     Dates: start: 20030910
  2. METHOTREXATE [Concomitant]
     Dates: start: 20050404, end: 20070409
  3. CORTISONE [Concomitant]
     Dates: start: 20020101, end: 20050314
  4. PLAQUENIL [Concomitant]
     Dates: end: 20071001

REACTIONS (7)
  - ABORTION SPONTANEOUS [None]
  - ARRESTED LABOUR [None]
  - ARTHRITIS [None]
  - BLOOD GLUCOSE INCREASED [None]
  - BRONCHITIS [None]
  - ECTOPIC PREGNANCY [None]
  - NEPHROLITHIASIS [None]
